FAERS Safety Report 11970995 (Version 1)
Quarter: 2016Q1

REPORT INFORMATION
  Report Type: Other
  Country: US (occurrence: US)
  Receive Date: 20160128
  Receipt Date: 20160128
  Transmission Date: 20160526
  Serious: Yes (Hospitalization)
  Sender: FDA-Public Use
  Company Number: US-CONCORDIA PHARMACEUTICALS INC.-CO-KX-US-2016-005

PATIENT
  Age: 48 Year
  Sex: Male

DRUGS (1)
  1. SODIUM POLYSTYRENE SULFONATE. [Suspect]
     Active Substance: SODIUM POLYSTYRENE SULFONATE
     Indication: HYPERKALAEMIA
     Route: 065

REACTIONS (8)
  - Nausea [Recovering/Resolving]
  - Gastric mucosa erythema [Recovering/Resolving]
  - Biopsy stomach abnormal [Recovering/Resolving]
  - Abdominal pain [Recovering/Resolving]
  - Vomiting [Recovering/Resolving]
  - Abdominal pain upper [Recovering/Resolving]
  - Gastrointestinal injury [Recovering/Resolving]
  - Mucosal inflammation [Recovering/Resolving]
